FAERS Safety Report 18563266 (Version 1)
Quarter: 2020Q4

REPORT INFORMATION
  Report Type: Other
  Country: CA (occurrence: CA)
  Receive Date: 20201201
  Receipt Date: 20201201
  Transmission Date: 20210114
  Serious: Yes (Hospitalization, Other)
  Sender: FDA-Public Use
  Company Number: CA-CELLTRION INC.-2020CA032701

PATIENT

DRUGS (14)
  1. CITALOPRAM HYDROBROMIDE. [Concomitant]
     Active Substance: CITALOPRAM HYDROBROMIDE
  2. ERGOCALCIFEROL. [Concomitant]
     Active Substance: ERGOCALCIFEROL
  3. PREDNISONE. [Concomitant]
     Active Substance: PREDNISONE
  4. MESTINON [Concomitant]
     Active Substance: PYRIDOSTIGMINE BROMIDE
  5. METHYLPREDNISOLONE. [Concomitant]
     Active Substance: METHYLPREDNISOLONE
  6. SYNTHROID [Concomitant]
     Active Substance: LEVOTHYROXINE SODIUM
  7. THYROXINE [Concomitant]
     Active Substance: LEVOTHYROXINE
  8. TYLENOL [Concomitant]
     Active Substance: ACETAMINOPHEN
  9. ZOPICLONE [Concomitant]
     Active Substance: ZOPICLONE
  10. DIPHENHYDRAMINE. [Concomitant]
     Active Substance: DIPHENHYDRAMINE
  11. RITUXIMAB (UNKNOWN) [Suspect]
     Active Substance: RITUXIMAB
     Indication: PRODUCT USED FOR UNKNOWN INDICATION
     Dosage: 1000 MILLIGRAM, 1 EVERY 2 WEEKS
     Route: 042
  12. ALTACE [Concomitant]
     Active Substance: RAMIPRIL
     Route: 065
  13. AMLODIPINE BESILATE [Concomitant]
     Active Substance: AMLODIPINE BESYLATE
  14. IMMUNOGLOBULIN (HUMAN) [Concomitant]

REACTIONS (16)
  - Eye movement disorder [Recovered/Resolved]
  - General physical health deterioration [Recovered/Resolved]
  - Intentional product use issue [Recovered/Resolved]
  - Cervical radiculopathy [Recovered/Resolved]
  - Dermatochalasis [Recovered/Resolved]
  - Diplopia [Recovered/Resolved]
  - Gaze palsy [Recovered/Resolved]
  - Radicular pain [Recovered/Resolved]
  - Ophthalmoplegia [Recovered/Resolved]
  - Hypoaesthesia [Recovered/Resolved]
  - Visual impairment [Recovered/Resolved]
  - Dysarthria [Recovered/Resolved]
  - Off label use [Recovered/Resolved]
  - Diverticulitis [Recovered/Resolved]
  - Ear pruritus [Recovered/Resolved]
  - Eyelid ptosis [Recovered/Resolved]
